FAERS Safety Report 16283284 (Version 2)
Quarter: 2021Q2

REPORT INFORMATION
  Report Type: Spontaneous
  Country: US (occurrence: US)
  Receive Date: 20190507
  Receipt Date: 20210416
  Transmission Date: 20210716
  Serious: Yes (Hospitalization, Other)
  Sender: FDA-Public Use
  Company Number: US-ASTRAZENECA-2019SE61098

PATIENT
  Age: 21470 Day
  Sex: Female
  Weight: 90.7 kg

DRUGS (43)
  1. MIRTAZAPINE. [Concomitant]
     Active Substance: MIRTAZAPINE
  2. NAPROXEN. [Concomitant]
     Active Substance: NAPROXEN
  3. ZOLPIDEM [Concomitant]
     Active Substance: ZOLPIDEM TARTRATE
  4. NEXIUM [Suspect]
     Active Substance: ESOMEPRAZOLE MAGNESIUM
     Indication: GASTROOESOPHAGEAL REFLUX DISEASE
     Route: 048
  5. NEXIUM 24HR [Suspect]
     Active Substance: ESOMEPRAZOLE MAGNESIUM
     Indication: GASTROOESOPHAGEAL REFLUX DISEASE
     Route: 048
  6. METHADONE [Concomitant]
     Active Substance: METHADONE HYDROCHLORIDE
  7. CETRIZINE [Concomitant]
     Active Substance: CETIRIZINE HYDROCHLORIDE
  8. HYDROCODONE [Concomitant]
     Active Substance: HYDROCODONE
  9. METOPROLOL. [Concomitant]
     Active Substance: METOPROLOL
  10. CYCLOBENZAPRINE. [Concomitant]
     Active Substance: CYCLOBENZAPRINE
  11. MONTELUKAST [Concomitant]
     Active Substance: MONTELUKAST SODIUM
  12. TIOTROPIUM [Concomitant]
     Active Substance: TIOTROPIUM
  13. NITROGLYCERIN. [Concomitant]
     Active Substance: NITROGLYCERIN
  14. GLIPIZIDE. [Concomitant]
     Active Substance: GLIPIZIDE
  15. PREVACID [Suspect]
     Active Substance: LANSOPRAZOLE
     Indication: GASTROOESOPHAGEAL REFLUX DISEASE
     Route: 065
  16. PRILOSEC OTC [Suspect]
     Active Substance: OMEPRAZOLE MAGNESIUM
     Indication: GASTROOESOPHAGEAL REFLUX DISEASE
     Route: 048
  17. SIMVASTATIN. [Concomitant]
     Active Substance: SIMVASTATIN
  18. LOSARTAN. [Concomitant]
     Active Substance: LOSARTAN
  19. TROLAMINE [Concomitant]
     Active Substance: TROLAMINE
  20. PERMETHRIN. [Concomitant]
     Active Substance: PERMETHRIN
  21. OLODATEROL [Concomitant]
     Active Substance: OLODATEROL
  22. PROTONIX [Suspect]
     Active Substance: PANTOPRAZOLE SODIUM
     Indication: GASTROOESOPHAGEAL REFLUX DISEASE
     Route: 065
  23. PREDNISONE. [Concomitant]
     Active Substance: PREDNISONE
  24. ADVAIR HFA [Concomitant]
     Active Substance: FLUTICASONE PROPIONATE\SALMETEROL XINAFOATE
  25. FUROSEMIDE. [Concomitant]
     Active Substance: FUROSEMIDE
  26. CLOPIDOGREL [Concomitant]
     Active Substance: CLOPIDOGREL BISULFATE
  27. XANAX [Concomitant]
     Active Substance: ALPRAZOLAM
  28. PRILOSEC [Suspect]
     Active Substance: OMEPRAZOLE MAGNESIUM
     Indication: GASTROOESOPHAGEAL REFLUX DISEASE
     Route: 048
  29. ONDANSETRON [Concomitant]
     Active Substance: ONDANSETRON
  30. CITALOPRAM [Concomitant]
     Active Substance: CITALOPRAM HYDROBROMIDE
  31. ALPRAZOLAM. [Concomitant]
     Active Substance: ALPRAZOLAM
  32. OLODATEROL [Concomitant]
     Active Substance: OLODATEROL
  33. ALBUTEROL. [Concomitant]
     Active Substance: ALBUTEROL
  34. METFORMIN [Concomitant]
     Active Substance: METFORMIN HYDROCHLORIDE
  35. TROLAMINE [Concomitant]
     Active Substance: TROLAMINE
  36. ACETAMINOPHEN. [Concomitant]
     Active Substance: ACETAMINOPHEN
  37. LISINOPRIL. [Concomitant]
     Active Substance: LISINOPRIL
     Indication: HYPERTENSION
     Dates: start: 201201, end: 201204
  38. CLONAZEPAM. [Concomitant]
     Active Substance: CLONAZEPAM
  39. ISOSORBIDE MONONITRATE. [Concomitant]
     Active Substance: ISOSORBIDE MONONITRATE
  40. RANITIDINE. [Concomitant]
     Active Substance: RANITIDINE
  41. ZOCOR [Concomitant]
     Active Substance: SIMVASTATIN
  42. AMITRYPTYLINE [Concomitant]
     Active Substance: AMITRIPTYLINE
  43. SERTRALINE [Concomitant]
     Active Substance: SERTRALINE HYDROCHLORIDE

REACTIONS (4)
  - Chronic kidney disease-mineral and bone disorder [Unknown]
  - Renal failure [Unknown]
  - Chronic kidney disease [Not Recovered/Not Resolved]
  - Acute kidney injury [Unknown]

NARRATIVE: CASE EVENT DATE: 20150908
